FAERS Safety Report 16532164 (Version 1)
Quarter: 2019Q3

REPORT INFORMATION
  Report Type: Spontaneous
  Country: ID (occurrence: ID)
  Receive Date: 20190705
  Receipt Date: 20190705
  Transmission Date: 20191004
  Serious: Yes (Death, Hospitalization)
  Sender: FDA-Public Use
  Company Number: ID-JNJFOC-20190626992

PATIENT
  Age: 80 Year
  Sex: Male

DRUGS (2)
  1. ZYTIGA [Suspect]
     Active Substance: ABIRATERONE ACETATE
     Dosage: THE PRESCRIPTION WAS GIVEN ON 02-MAY-2019 AND MAY BE CONSUMED BY PATIENT AROUND 03-MAY-2019 OR 04-MA
     Route: 048
     Dates: start: 201905, end: 201905
  2. ZYTIGA [Suspect]
     Active Substance: ABIRATERONE ACETATE
     Indication: PRODUCT USED FOR UNKNOWN INDICATION
     Route: 048

REACTIONS (1)
  - Dengue haemorrhagic fever [Fatal]

NARRATIVE: CASE EVENT DATE: 201905
